FAERS Safety Report 13586921 (Version 1)
Quarter: 2017Q2

REPORT INFORMATION
  Report Type: Spontaneous
  Country: US (occurrence: US)
  Receive Date: 20170526
  Receipt Date: 20170526
  Transmission Date: 20170830
  Serious: No
  Sender: FDA-Public Use
  Company Number: US-ROCHE-1371583

PATIENT
  Sex: Female

DRUGS (1)
  1. VALCYTE [Suspect]
     Active Substance: VALGANCICLOVIR HYDROCHLORIDE
     Indication: CHRONIC FATIGUE SYNDROME
     Dosage: FOR LAST 6-7 MONTHS
     Route: 065
     Dates: start: 2013

REACTIONS (2)
  - Vaginal haemorrhage [Not Recovered/Not Resolved]
  - Amenorrhoea [Unknown]
